FAERS Safety Report 5162134-6 (Version None)
Quarter: 2006Q4

REPORT INFORMATION
  Report Type: 
  Country: None (occurrence: None)
  Receive Date: 20061121
  Receipt Date: 20061113
  Transmission Date: 20070319
  Serious: Yes (Death)
  Sender: FDA-Public Use
  Company Number: HQWYE742216NOV06

PATIENT
  Age: 75 Year
  Sex: Male

DRUGS (12)
  1. PIPERACILLIN AND TAZOBACTAM [Suspect]
     Indication: DYSPNOEA
     Dosage: 4.5 G 3X PER 1 DAY; INTRAVENOUS
     Route: 042
  2. PIPERACILLIN AND TAZOBACTAM [Suspect]
     Indication: PYREXIA
     Dosage: 4.5 G 3X PER 1 DAY; INTRAVENOUS
     Route: 042
  3. PIPERACILLIN AND TAZOBACTAM [Suspect]
     Indication: TACHYCARDIA
     Dosage: 4.5 G 3X PER 1 DAY; INTRAVENOUS
     Route: 042
  4. PIPERACILLIN AND TAZOBACTAM [Suspect]
     Indication: TACHYPNOEA
     Dosage: 4.5 G 3X PER 1 DAY; INTRAVENOUS
     Route: 042
  5. FLUCONAZOLE [Suspect]
     Indication: DYSPNOEA
     Dosage: 100 MG 2X PER 1 DAY; INTRAVENOUS
     Route: 042
  6. FLUCONAZOLE [Suspect]
     Indication: PYREXIA
     Dosage: 100 MG 2X PER 1 DAY; INTRAVENOUS
     Route: 042
  7. FLUCONAZOLE [Suspect]
     Indication: TACHYCARDIA
     Dosage: 100 MG 2X PER 1 DAY; INTRAVENOUS
     Route: 042
  8. FLUCONAZOLE [Suspect]
     Indication: TACHYPNOEA
     Dosage: 100 MG 2X PER 1 DAY; INTRAVENOUS
     Route: 042
  9. LEVOFLOXACIN [Suspect]
     Indication: DYSPNOEA
     Dosage: 500 MG 1X PER 1 DAY; INTRAVENOUS
     Route: 042
  10. LEVOFLOXACIN [Suspect]
     Indication: PYREXIA
     Dosage: 500 MG 1X PER 1 DAY; INTRAVENOUS
     Route: 042
  11. LEVOFLOXACIN [Suspect]
     Indication: TACHYCARDIA
     Dosage: 500 MG 1X PER 1 DAY; INTRAVENOUS
     Route: 042
  12. LEVOFLOXACIN [Suspect]
     Indication: TACHYPNOEA
     Dosage: 500 MG 1X PER 1 DAY; INTRAVENOUS
     Route: 042

REACTIONS (11)
  - ALANINE AMINOTRANSFERASE INCREASED [None]
  - ANASTOMOTIC COMPLICATION [None]
  - ASPARTATE AMINOTRANSFERASE INCREASED [None]
  - BACTEROIDES INFECTION [None]
  - BLOOD CREATININE INCREASED [None]
  - CANDIDIASIS [None]
  - KLEBSIELLA INFECTION [None]
  - MULTIPLE-DRUG RESISTANCE [None]
  - PATHOGEN RESISTANCE [None]
  - RESPIRATORY FAILURE [None]
  - SEPTIC SHOCK [None]
